FAERS Safety Report 5128705-8 (Version None)
Quarter: 2006Q4

REPORT INFORMATION
  Report Type: 
  Country: None (occurrence: None)
  Receive Date: 20061017
  Receipt Date: 20061004
  Transmission Date: 20070319
  Serious: Yes (Hospitalization, Disabling, Other)
  Sender: FDA-Public Use
  Company Number: US-AVENTIS-200618444US

PATIENT
  Sex: Female
  Weight: 68.18 kg

DRUGS (10)
  1. KETEK [Suspect]
     Indication: SINUSITIS
     Dosage: DOSE: UNKNOWN
     Dates: start: 20060220
  2. LEVAQUIN [Suspect]
     Dosage: DOSE: UNKNOWN
     Dates: start: 20060201
  3. LOPID [Concomitant]
     Dosage: DOSE: UNKNOWN
  4. NIFEDIPINE [Concomitant]
     Dosage: DOSE: UNKNOWN
  5. LIPITOR [Concomitant]
     Dosage: DOSE: UNKNOWN
  6. LASIX [Concomitant]
     Dosage: DOSE: UNKNOWN
  7. ANTI-ASTHMATICS [Concomitant]
     Dosage: DOSE: UNKNOWN
  8. ANTIDEPRESSANTS [Concomitant]
     Dosage: DOSE: UNKNOWN
  9. UNKNOWN DRUG [Concomitant]
     Dosage: DOSE: UNKNOWN
  10. PRESSOR MEDICATION [Concomitant]
     Indication: HYPOTENSION

REACTIONS (13)
  - ABDOMINAL PAIN [None]
  - ABDOMINAL TENDERNESS [None]
  - ATRIAL THROMBOSIS [None]
  - DEPRESSION [None]
  - EXTREMITY NECROSIS [None]
  - GASTROINTESTINAL NECROSIS [None]
  - HYPOTENSION [None]
  - IMPAIRED HEALING [None]
  - PSEUDOMEMBRANOUS COLITIS [None]
  - SEPSIS [None]
  - SKIN NECROSIS [None]
  - SKIN ULCER [None]
  - WEIGHT DECREASED [None]
